FAERS Safety Report 24967810 (Version 7)
Quarter: 2025Q4

REPORT INFORMATION
  Report Type: Report from Study
  Country: US (occurrence: US)
  Receive Date: 20250214
  Receipt Date: 20251223
  Transmission Date: 20260118
  Serious: Yes (Hospitalization, Other)
  Sender: TAKEDA
  Company Number: US-TAKEDA-2025TUS014232

PATIENT
  Age: 61 Year
  Sex: Female

DRUGS (28)
  1. TEDUGLUTIDE [Suspect]
     Active Substance: TEDUGLUTIDE
     Indication: Short-bowel syndrome
     Dosage: UNK UNK, QD
     Dates: start: 201404
  2. TEDUGLUTIDE [Suspect]
     Active Substance: TEDUGLUTIDE
  3. TEDUGLUTIDE [Suspect]
     Active Substance: TEDUGLUTIDE
  4. TEDUGLUTIDE [Suspect]
     Active Substance: TEDUGLUTIDE
  5. OPIUM TINCTURE [Concomitant]
     Active Substance: MORPHINE
     Indication: Prophylaxis
     Dosage: 10 MILLIGRAM, QID
     Dates: start: 20210725
  6. LOMOTIL [Concomitant]
     Active Substance: ATROPINE SULFATE\DIPHENOXYLATE HYDROCHLORIDE
     Indication: Prophylaxis
     Dosage: 1 MILLIGRAM, QID
     Dates: start: 20210725
  7. LEVOTHYROXINE [Concomitant]
     Active Substance: LEVOTHYROXINE
     Indication: Hypothyroidism
     Dosage: 50 MICROGRAM, QD
     Dates: start: 20210906
  8. CEFTRIAXONE [Concomitant]
     Active Substance: CEFTRIAXONE
     Indication: Urinary tract infection
     Dosage: 1 GRAM, QD
     Dates: start: 20240327, end: 20240329
  9. CEPHALEXIN [Concomitant]
     Active Substance: CEPHALEXIN
     Indication: Urinary tract infection
     Dosage: 500 MILLIGRAM, QID
     Dates: start: 20240330, end: 20240403
  10. HYDROMORPHONE [Concomitant]
     Active Substance: HYDROMORPHONE
     Indication: Urinary tract infection
     Dosage: 0.4 MILLIGRAM
     Dates: start: 20240327, end: 20240328
  11. HYDROMORPHONE [Concomitant]
     Active Substance: HYDROMORPHONE
     Dosage: 0.2 MILLIGRAM
     Dates: start: 20240329, end: 20240329
  12. PHENAZOPYRIDINE [Concomitant]
     Active Substance: PHENAZOPYRIDINE
     Indication: Urinary tract infection
     Dosage: 200 MILLIGRAM
     Dates: start: 20240328, end: 20240331
  13. SODIUM CHLORIDE [Concomitant]
     Active Substance: SODIUM CHLORIDE
     Indication: Dehydration
     Dosage: 1 LITER, SINGLE
     Dates: start: 20240327, end: 20240327
  14. TRAMADOL [Concomitant]
     Active Substance: TRAMADOL
     Indication: Urinary tract infection
     Dosage: 50 MILLIGRAM
     Dates: start: 20240330, end: 20240331
  15. LOVENOX [Concomitant]
     Active Substance: ENOXAPARIN SODIUM
     Dosage: 40 MILLIGRAM, SINGLE
     Dates: start: 20240820, end: 20240820
  16. LOVENOX [Concomitant]
     Active Substance: ENOXAPARIN SODIUM
     Dosage: 40 MILLIGRAM, SINGLE
     Dates: start: 20241128, end: 20241128
  17. MAGNESIUM SULFATE [Concomitant]
     Active Substance: MAGNESIUM SULFATE
     Indication: Supplementation therapy
     Dosage: 2 GRAM
     Dates: start: 20231004, end: 20241020
  18. MAGNESIUM SULFATE [Concomitant]
     Active Substance: MAGNESIUM SULFATE
     Dosage: 2 GRAM
     Dates: start: 20240817, end: 20240822
  19. MAGNESIUM SULFATE [Concomitant]
     Active Substance: MAGNESIUM SULFATE
     Dosage: 4 GRAM
     Dates: start: 20240824, end: 20240826
  20. MAGNESIUM SULFATE [Concomitant]
     Active Substance: MAGNESIUM SULFATE
     Dosage: 2 GRAM, QD
     Dates: start: 20241116, end: 20241213
  21. INFLUENZA VIRUS VACCINE [Concomitant]
     Active Substance: INFLUENZA VIRUS VACCINE
     Indication: Antiviral prophylaxis
     Dosage: 0.5 MILLILITER, SINGLE
     Dates: start: 20240910, end: 20240910
  22. OMNIPAQUE [Concomitant]
     Active Substance: IOHEXOL
     Dosage: 150 MILLILITER, SINGLE
     Dates: start: 20241023, end: 20241023
  23. OMNIPAQUE [Concomitant]
     Active Substance: IOHEXOL
     Dosage: 50 MILLILITER, SINGLE
     Dates: start: 20250302, end: 20250302
  24. VENOFER [Concomitant]
     Active Substance: IRON SUCROSE
     Indication: Supplementation therapy
     Dosage: 200 MILLIGRAM, QD
     Dates: start: 20241021, end: 20241022
  25. AUGMENTIN [Concomitant]
     Active Substance: AMOXICILLIN\CLAVULANATE POTASSIUM
     Dosage: 500 MILLIGRAM, BID
     Dates: start: 20241121, end: 20241122
  26. VISTARIL [Concomitant]
     Active Substance: HYDROXYZINE PAMOATE
     Dosage: 25 MILLIGRAM, SINGLE
     Dates: start: 20250302, end: 20250302
  27. VISIPAQUE [Concomitant]
     Active Substance: IODIXANOL
     Dosage: 100 MILLILITER, SINGLE
     Dates: start: 20250302, end: 20250302
  28. SOLU-MEDROL [Concomitant]
     Active Substance: METHYLPREDNISOLONE SODIUM SUCCINATE
     Dosage: 125 MILLIGRAM, SINGLE
     Dates: start: 20250302, end: 20250302

REACTIONS (15)
  - Gastrointestinal stoma output increased [Recovered/Resolved]
  - Acute kidney injury [Recovered/Resolved]
  - Staphylococcal infection [Recovered/Resolved]
  - Peripheral swelling [Recovered/Resolved]
  - Oedema peripheral [Recovered/Resolved]
  - Osteoporosis [Not Recovered/Not Resolved]
  - Cystitis [Recovered/Resolved]
  - Device malfunction [Recovered/Resolved]
  - Dysuria [Recovered/Resolved]
  - Hiatus hernia [Not Recovered/Not Resolved]
  - Oesophagitis [Not Recovered/Not Resolved]
  - Seborrhoeic keratosis [Recovered/Resolved]
  - Rash [Recovered/Resolved]
  - Abdominal pain [Recovered/Resolved]
  - Nausea [Recovered/Resolved]

NARRATIVE: CASE EVENT DATE: 20240606
